FAERS Safety Report 12764429 (Version 1)
Quarter: 2016Q3

REPORT INFORMATION
  Report Type: Spontaneous
  Country: JP (occurrence: JP)
  Receive Date: 20160920
  Receipt Date: 20160920
  Transmission Date: 20161109
  Serious: Yes (Hospitalization, Other)
  Sender: FDA-Public Use
  Company Number: JP-GLAXOSMITHKLINE-JP2016JPN091857

PATIENT
  Age: 32 Year
  Sex: Female
  Weight: 55 kg

DRUGS (3)
  1. LAMICTAL [Suspect]
     Active Substance: LAMOTRIGINE
     Dosage: 50 MG, 1D
     Route: 048
     Dates: start: 20160526, end: 20160607
  2. DEPAKENE [Concomitant]
     Active Substance: VALPROIC ACID
     Dosage: 400 MG, BID
  3. LAMICTAL [Suspect]
     Active Substance: LAMOTRIGINE
     Indication: EPILEPSY
     Dosage: 25 MG, 1D
     Route: 048
     Dates: start: 20160427, end: 20160525

REACTIONS (25)
  - Oral discomfort [Recovered/Resolved]
  - Eye discharge [Recovered/Resolved]
  - Oral mucosa erosion [Recovered/Resolved]
  - Cough [Recovered/Resolved]
  - Erythema multiforme [Recovered/Resolved]
  - Pyrexia [Recovered/Resolved]
  - Laryngeal ulceration [Recovered/Resolved]
  - Malaise [Recovered/Resolved]
  - Palmar erythema [Recovered/Resolved]
  - Lip erosion [Recovered/Resolved]
  - Asthenia [Recovered/Resolved]
  - Epidermal necrosis [Recovered/Resolved]
  - Lymph node pain [Recovered/Resolved]
  - Ocular hyperaemia [Recovered/Resolved]
  - Rash maculo-papular [Recovered/Resolved]
  - Oral pain [Recovered/Resolved]
  - Abnormal sensation in eye [Recovered/Resolved]
  - Rash papular [Recovered/Resolved]
  - Blister [Recovered/Resolved]
  - Erythema of eyelid [Recovered/Resolved]
  - Drug hypersensitivity [Recovered/Resolved]
  - Stevens-Johnson syndrome [Recovered/Resolved]
  - Mouth ulceration [Recovered/Resolved]
  - Nasal mucosal erosion [Recovered/Resolved]
  - Plantar erythema [Recovered/Resolved]

NARRATIVE: CASE EVENT DATE: 201606
